FAERS Safety Report 7872746-4 (Version None)
Quarter: 2011Q4

REPORT INFORMATION
  Report Type: 
  Country: None (occurrence: None)
  Receive Date: 20111030
  Receipt Date: 20110420
  Transmission Date: 20120403
  Serious: No
  Sender: FDA-Public Use
  Company Number: US-AMGEN-USASP2011020944

PATIENT
  Sex: Female

DRUGS (1)
  1. ENBREL [Suspect]
     Indication: PSORIASIS
     Dosage: 50 MG, 2 TIMES/WK
     Dates: start: 20110106

REACTIONS (9)
  - NEPHROLITHIASIS [None]
  - MUSCULAR WEAKNESS [None]
  - LOCALISED OEDEMA [None]
  - GROIN PAIN [None]
  - PAIN IN EXTREMITY [None]
  - SINUSITIS [None]
  - ABDOMINAL TENDERNESS [None]
  - MUSCLE SPASMS [None]
  - MUSCLE TIGHTNESS [None]
